FAERS Safety Report 16808025 (Version 1)
Quarter: 2019Q3

REPORT INFORMATION
  Report Type: Spontaneous
  Country: JP (occurrence: JP)
  Receive Date: 20190916
  Receipt Date: 20190916
  Transmission Date: 20191005
  Serious: No
  Sender: FDA-Public Use
  Company Number: JP-BEH-2019106974

PATIENT

DRUGS (1)
  1. ALCOHOL PAD [Suspect]
     Active Substance: ISOPROPYL ALCOHOL
     Route: 065

REACTIONS (3)
  - Product preparation issue [Unknown]
  - Device issue [Unknown]
  - No adverse event [Unknown]
